FAERS Safety Report 5498555-1 (Version None)
Quarter: 2007Q4

REPORT INFORMATION
  Report Type: 
  Country: None (occurrence: None)
  Receive Date: 20071026
  Receipt Date: 20071022
  Transmission Date: 20080405
  Serious: Yes (Death)
  Sender: FDA-Public Use
  Company Number: PHHO2007MX17595

PATIENT
  Age: 77 Year
  Sex: Male

DRUGS (1)
  1. DIOVAN HCT [Suspect]
     Indication: HYPERTENSION
     Dosage: 160/12.5MG DAILY
     Dates: start: 20060501, end: 20071001

REACTIONS (2)
  - CARDIAC FAILURE [None]
  - RENAL DISORDER [None]
